FAERS Safety Report 8204050-9 (Version None)
Quarter: 2012Q1

REPORT INFORMATION
  Report Type: 
  Country: None (occurrence: None)
  Receive Date: 20120313
  Receipt Date: 20120307
  Transmission Date: 20120608
  Serious: No
  Sender: FDA-Public Use
  Company Number: US-PFIZER INC-2012062203

PATIENT
  Sex: Female
  Weight: 95.238 kg

DRUGS (7)
  1. TOVIAZ [Suspect]
     Indication: URINARY INCONTINENCE
     Dosage: 4 MG, DAILY
     Dates: start: 20120302, end: 20120307
  2. DOXAZOSIN [Concomitant]
     Indication: HYPERTENSION
     Dosage: UNK, DAILY
  3. HYDROCODONE [Concomitant]
     Indication: ARTHRALGIA
     Dosage: UNK, DAILY
  4. RAMIPRIL [Concomitant]
     Indication: HYPERTENSION
     Dosage: UNK, 2X/DAY
  5. AMLODIPINE [Concomitant]
     Indication: HYPERTENSION
     Dosage: UNK, DAILY
  6. ASPIRIN [Concomitant]
     Indication: CARDIAC DISORDER
     Dosage: 81 MG, DAILY
  7. SYNTHROID [Concomitant]
     Indication: THYROIDECTOMY
     Dosage: UNK, DAILY

REACTIONS (2)
  - DRUG INTERACTION [None]
  - EPISTAXIS [None]
